FAERS Safety Report 8074993-8 (Version None)
Quarter: 2012Q1

REPORT INFORMATION
  Report Type: 
  Country: None (occurrence: None)
  Receive Date: 20120127
  Receipt Date: 20120118
  Transmission Date: 20120608
  Serious: No
  Sender: FDA-Public Use
  Company Number: US-BIOGENIDEC-2011BI022707

PATIENT
  Age: 62 Year
  Sex: Female

DRUGS (1)
  1. TYSABRI [Suspect]
     Indication: MULTIPLE SCLEROSIS
     Route: 042
     Dates: start: 20110201

REACTIONS (7)
  - FALL [None]
  - MUSCLE SPASMS [None]
  - CONTUSION [None]
  - HOT FLUSH [None]
  - SKIN EXFOLIATION [None]
  - VASCULAR RUPTURE [None]
  - FATIGUE [None]
